FAERS Safety Report 5332812-4 (Version None)
Quarter: 2007Q2

REPORT INFORMATION
  Report Type: 
  Country: None (occurrence: None)
  Receive Date: 20070523
  Receipt Date: 20070517
  Transmission Date: 20071010
  Serious: Yes (Other)
  Sender: FDA-Public Use
  Company Number: AU-PFIZER INC-2007040117

PATIENT
  Age: 27 Year
  Sex: Female

DRUGS (2)
  1. LYRICA [Suspect]
     Dosage: TEXT:STAT
     Route: 048
  2. CITALOPRAM HYDROBROMIDE [Concomitant]

REACTIONS (2)
  - HYPERSENSITIVITY [None]
  - RASH [None]
